FAERS Safety Report 12426182 (Version 7)
Quarter: 2019Q1

REPORT INFORMATION
  Report Type: Report from Study
  Country: US (occurrence: US)
  Receive Date: 20160601
  Receipt Date: 20190104
  Transmission Date: 20190417
  Serious: No
  Sender: FDA-Public Use
  Company Number: US-JNJFOC-20160529665

PATIENT
  Age: 74 Year
  Sex: Female

DRUGS (5)
  1. INFLIXIMAB, RECOMBINANT [Suspect]
     Active Substance: INFLIXIMAB
     Indication: PSORIASIS
     Route: 042
     Dates: end: 20170726
  2. INFLIXIMAB, RECOMBINANT [Suspect]
     Active Substance: INFLIXIMAB
     Indication: PSORIASIS
     Route: 042
     Dates: end: 20181130
  3. INFLIXIMAB, RECOMBINANT [Suspect]
     Active Substance: INFLIXIMAB
     Indication: PSORIASIS
     Route: 042
     Dates: end: 20160822
  4. INFLIXIMAB, RECOMBINANT [Suspect]
     Active Substance: INFLIXIMAB
     Indication: PSORIASIS
     Route: 042
     Dates: end: 20180307
  5. INFLIXIMAB, RECOMBINANT [Suspect]
     Active Substance: INFLIXIMAB
     Indication: PSORIASIS
     Route: 042
     Dates: start: 20050101, end: 20160411

REACTIONS (10)
  - Squamous cell carcinoma [Recovered/Resolved]
  - Squamous cell carcinoma [Unknown]
  - Squamous cell carcinoma of skin [Unknown]
  - Malignant melanoma in situ [Unknown]
  - Malignant melanoma stage I [Unknown]
  - Lentigo maligna [Unknown]
  - Keratoacanthoma [Unknown]
  - Squamous cell carcinoma [Unknown]
  - Malignant melanoma [Unknown]
  - Malignant melanoma in situ [Unknown]

NARRATIVE: CASE EVENT DATE: 20130430
